FAERS Safety Report 22320234 (Version 3)
Quarter: 2023Q2

REPORT INFORMATION
  Report Type: Report from Study
  Country: US (occurrence: US)
  Receive Date: 20230515
  Receipt Date: 20230524
  Transmission Date: 20230722
  Serious: No
  Sender: FDA-Public Use
  Company Number: US-002147023-NVSC2023US109747

PATIENT
  Sex: Female
  Weight: 84 kg

DRUGS (17)
  1. COSENTYX [Suspect]
     Active Substance: SECUKINUMAB
     Indication: Psoriasis
     Dosage: 300 MILLIGRAM PER MILLILITRE (150 MG/ML; 2 PENS
     Route: 058
  2. BETAMETHASONE [Concomitant]
     Active Substance: BETAMETHASONE
     Indication: Psoriasis
     Dosage: 0.1 %
     Route: 061
  3. MOMETASONE [Concomitant]
     Active Substance: MOMETASONE
     Indication: Psoriasis
     Dosage: 0.1 %
     Route: 061
  4. AMLODIPINE [Concomitant]
     Active Substance: AMLODIPINE BESYLATE
     Indication: Psoriasis
     Dosage: 10 MG
     Route: 048
  5. ARIPIPRAZOLE [Concomitant]
     Active Substance: ARIPIPRAZOLE
     Indication: Psoriasis
     Dosage: 10 MG
     Route: 048
  6. CALCIUM [Concomitant]
     Active Substance: CALCIUM
     Indication: Psoriasis
     Dosage: UNK (CALCIUM 600 + D (3))
     Route: 048
  7. CLONIDINE [Concomitant]
     Active Substance: CLONIDINE
     Indication: Psoriasis
     Dosage: 0.1 MG
     Route: 048
  8. CLONIDINE [Concomitant]
     Active Substance: CLONIDINE
     Dosage: UNK (CLONIDINE HCI)
     Route: 048
  9. LOVASTATIN [Concomitant]
     Active Substance: LOVASTATIN
     Indication: Psoriasis
     Dosage: 20 MG
     Route: 048
  10. FAMOTIDINE [Concomitant]
     Active Substance: FAMOTIDINE
     Indication: Psoriasis
     Dosage: 40 MG
     Route: 048
  11. VITAMINS [Concomitant]
     Active Substance: VITAMINS
     Indication: Psoriasis
     Dosage: UNK
     Route: 048
  12. DICYCLOMINE [Concomitant]
     Active Substance: DICYCLOMINE HYDROCHLORIDE
     Indication: Psoriasis
     Dosage: 20 MG
     Route: 048
  13. GABAPENTIN [Concomitant]
     Active Substance: GABAPENTIN
     Indication: Psoriasis
     Dosage: 600 MG
     Route: 048
  14. ISOSORBIDE [Concomitant]
     Active Substance: ISOSORBIDE
     Indication: Psoriasis
     Dosage: 30 MG
     Route: 048
  15. LOSARTAN [Concomitant]
     Active Substance: LOSARTAN
     Indication: Psoriasis
     Dosage: UNK
     Route: 048
  16. TRAMADOL [Concomitant]
     Active Substance: TRAMADOL
     Indication: Psoriasis
     Dosage: 50 MG
     Route: 048
  17. TRAZODONE [Concomitant]
     Active Substance: TRAZODONE HYDROCHLORIDE
     Indication: Psoriasis
     Dosage: 100 MG
     Route: 048

REACTIONS (4)
  - Psoriasis [Recovering/Resolving]
  - Dermatitis psoriasiform [Recovering/Resolving]
  - Angular cheilitis [Not Recovered/Not Resolved]
  - Drug ineffective [Unknown]
